FAERS Safety Report 8619934-7 (Version None)
Quarter: 2012Q3

REPORT INFORMATION
  Report Type: 
  Country: None (occurrence: None)
  Receive Date: 20120817
  Receipt Date: 20120817
  Transmission Date: 20120928
  Serious: No
  Sender: FDA-Public Use
  Company Number: None

PATIENT
  Sex: Male
  Weight: 94.3482 kg

DRUGS (1)
  1. ATORVASTATIN CALCIUM [Suspect]
     Dosage: 40 MG QD ORALLY
     Route: 048
     Dates: start: 20120209, end: 20120223

REACTIONS (2)
  - PRODUCT SUBSTITUTION ISSUE [None]
  - MUSCLE SPASMS [None]
